FAERS Safety Report 4935276-5 (Version None)
Quarter: 2006Q1

REPORT INFORMATION
  Report Type: 
  Country: None (occurrence: None)
  Receive Date: 20060307
  Receipt Date: 20060302
  Transmission Date: 20060701
  Serious: Yes (Disabling)
  Sender: FDA-Public Use
  Company Number: DE-SANOFI-SYNTHELABO-F04200600036

PATIENT
  Sex: Male

DRUGS (3)
  1. ELOXATIN [Suspect]
     Indication: RECTAL CANCER
     Route: 041
     Dates: start: 20051207, end: 20051207
  2. CAPECITABINE [Concomitant]
     Indication: RECTAL CANCER
     Route: 048
     Dates: start: 20051109, end: 20051214
  3. CETUXIMAB [Concomitant]
     Indication: RECTAL CANCER
     Route: 041
     Dates: start: 20051214, end: 20051214

REACTIONS (3)
  - DEAFNESS [None]
  - TINNITUS [None]
  - VERTIGO [None]
